FAERS Safety Report 7115920-7 (Version None)
Quarter: 2010Q4

REPORT INFORMATION
  Report Type: 
  Country: None (occurrence: None)
  Receive Date: 20101122
  Receipt Date: 20101109
  Transmission Date: 20110411
  Serious: Yes (Disabling)
  Sender: FDA-Public Use
  Company Number: US-ELI_LILLY_AND_COMPANY-US201011002980

PATIENT
  Sex: Female

DRUGS (4)
  1. FORTEO [Suspect]
     Dosage: 20 UG, DAILY (1/D)
  2. ZOLOFT [Concomitant]
  3. METOPROLOL TARTRATE [Concomitant]
  4. CALCIUM [Concomitant]

REACTIONS (3)
  - GAIT DISTURBANCE [None]
  - MOVEMENT DISORDER [None]
  - RASH ERYTHEMATOUS [None]
